FAERS Safety Report 11508903 (Version 1)
Quarter: 2015Q3

REPORT INFORMATION
  Report Type: Spontaneous
  Country: CH (occurrence: DE)
  Receive Date: 20150915
  Receipt Date: 20150915
  Transmission Date: 20151125
  Serious: Yes (Other)
  Sender: FDA-Public Use
  Company Number: CH-LPDUSPRD-20150688

PATIENT
  Age: 30 Year
  Sex: Male
  Weight: 63 kg

DRUGS (5)
  1. BUDESONIDE. [Concomitant]
     Active Substance: BUDESONIDE
     Dosage: 9 MG
     Route: 048
     Dates: start: 20120120
  2. BUDESONIDE. [Concomitant]
     Active Substance: BUDESONIDE
     Dosage: 90 MG
     Route: 048
     Dates: start: 20140317
  3. FERINJECT [Suspect]
     Active Substance: FERRIC CARBOXYMALTOSE
     Dosage: 500MG/100ML NACL, 3 DOSES
     Route: 041
     Dates: start: 20150528, end: 20150721
  4. REMICADE [Concomitant]
     Active Substance: INFLIXIMAB
     Route: 065
  5. SALBUTAMOL [Concomitant]
     Active Substance: ALBUTEROL
     Dosage: AS REQUIRED
     Route: 065
     Dates: start: 20121210

REACTIONS (6)
  - Swelling face [Unknown]
  - Urticaria [Unknown]
  - Angioedema [Unknown]
  - Flushing [Unknown]
  - Rhinorrhoea [Unknown]
  - Pruritus generalised [Unknown]

NARRATIVE: CASE EVENT DATE: 20150528
